FAERS Safety Report 4804467-6 (Version None)
Quarter: 2005Q4

REPORT INFORMATION
  Report Type: 
  Country: None (occurrence: None)
  Receive Date: 20051018
  Receipt Date: 20051018
  Transmission Date: 20060501
  Serious: Yes (Disabling, Other)
  Sender: FDA-Public Use
  Company Number: None

PATIENT
  Age: 43 Year
  Sex: Female
  Weight: 68.0396 kg

DRUGS (2)
  1. ZOLOFT [Suspect]
     Indication: BIPOLAR DISORDER
     Dosage: 250 MG DAILY PO
     Route: 048
     Dates: start: 19960101, end: 20051013
  2. ZOLOFT [Suspect]
     Indication: DEPRESSION
     Dosage: 250 MG DAILY PO
     Route: 048
     Dates: start: 19960101, end: 20051013

REACTIONS (9)
  - CONFUSIONAL STATE [None]
  - DIZZINESS [None]
  - DRUG DEPENDENCE [None]
  - DRUG WITHDRAWAL SYNDROME [None]
  - EYE MOVEMENT DISORDER [None]
  - INSOMNIA [None]
  - IRRITABILITY [None]
  - NAUSEA [None]
  - PARAESTHESIA [None]
